FAERS Safety Report 9536461 (Version 4)
Quarter: 2014Q2

REPORT INFORMATION
  Report Type: Report from Study
  Country: CA (occurrence: CA)
  Receive Date: 20130919
  Receipt Date: 20140606
  Transmission Date: 20141212
  Serious: Yes (Other)
  Sender: FDA-Public Use
  Company Number: CA-UCBSA-097831

PATIENT
  Age: 66 Year
  Sex: Female
  Weight: 75 kg

DRUGS (8)
  1. CERTOLIZUMAB PEGOL RA [Suspect]
     Indication: RHEUMATOID ARTHRITIS
     Dosage: 200 MG, EV 2 WEEKS(QOW); EXPIRY DATE: MAR-2015
     Route: 058
     Dates: start: 201402
  2. CERTOLIZUMAB PEGOL RA [Suspect]
     Dosage: DOSE: 400 MG; WEEKS 0-2-4
     Route: 058
     Dates: start: 20130215, end: 20140215
  3. FOLIC ACID [Concomitant]
     Indication: SUPPLEMENTATION THERAPY
     Dosage: 5 MG, WEEKLY (QW)
     Route: 048
     Dates: start: 2007
  4. METHOTREXATE [Concomitant]
     Indication: RHEUMATOID ARTHRITIS
     Dosage: .3 ML, WEEKLY (QW)
     Route: 058
     Dates: start: 20070725
  5. METHOTREXATE [Concomitant]
     Dosage: 7.5 MG, UNK
     Route: 058
     Dates: start: 2007
  6. ADVAIR [Concomitant]
     Indication: PULMONARY FIBROSIS
     Dosage: PUFF
  7. VENTOLIN [Concomitant]
     Dosage: PUFFER PRN
  8. SYMBICORT [Concomitant]
     Indication: EMPHYSEMA
     Dosage: 18 ?G, I PUFF ONCE DAILY, INHALATION

REACTIONS (3)
  - Pleurisy [Not Recovered/Not Resolved]
  - Psoriasis [Recovering/Resolving]
  - Urinary tract infection [Recovering/Resolving]
